FAERS Safety Report 18841905 (Version 1)
Quarter: 2021Q1

REPORT INFORMATION
  Report Type: Spontaneous
  Country: FR (occurrence: FR)
  Receive Date: 20210204
  Receipt Date: 20210204
  Transmission Date: 20210419
  Serious: Yes (Other)
  Sender: FDA-Public Use
  Company Number: FR-TEVA-2021-FR-1877218

PATIENT
  Age: 59 Year
  Sex: Female

DRUGS (1)
  1. ESTREVA [Suspect]
     Active Substance: ESTRADIOL
     Indication: HOT FLUSH
     Dosage: 0,1 % GEL ?} 3 PUMPS PER DAY OF PRODUCT AND APPLY THE PRODUCT ON HER ARMS, TIGHTS AND STOMACH
     Route: 065
     Dates: start: 202101

REACTIONS (4)
  - Ocular discomfort [Unknown]
  - Eye haemorrhage [Unknown]
  - Ocular hyperaemia [Unknown]
  - Drug ineffective [Unknown]

NARRATIVE: CASE EVENT DATE: 202101
